FAERS Safety Report 17097362 (Version 1)
Quarter: 2019Q4

REPORT INFORMATION
  Report Type: Spontaneous
  Country: US (occurrence: US)
  Receive Date: 20191105
  Receipt Date: 20191105
  Transmission Date: 20200122
  Serious: Yes (Hospitalization)
  Sender: FDA-Public Use
  Company Number: None

PATIENT
  Age: 64 Year
  Sex: Male

DRUGS (1)
  1. REPATHA [Suspect]
     Active Substance: EVOLOCUMAB
     Indication: TYPE V HYPERLIPIDAEMIA
     Dosage: ?          OTHER FREQUENCY:Q 14 DAYS ;?
     Route: 058
     Dates: start: 20181102

REACTIONS (2)
  - Therapy cessation [None]
  - Cerebrovascular accident [None]

NARRATIVE: CASE EVENT DATE: 20191017
